FAERS Safety Report 12256084 (Version 1)
Quarter: 2016Q2

REPORT INFORMATION
  Report Type: Spontaneous
  Country: US (occurrence: US)
  Receive Date: 20160412
  Receipt Date: 20160412
  Transmission Date: 20160815
  Serious: No
  Sender: FDA-Public Use
  Company Number: US-PFIZER INC-2016163456

PATIENT
  Sex: Male

DRUGS (3)
  1. NEURONTIN [Suspect]
     Active Substance: GABAPENTIN
     Dosage: DROPPED 300MG (IN THE AM)
  2. NEURONTIN [Suspect]
     Active Substance: GABAPENTIN
     Dosage: CAME OFF THE 2ND 300MG
  3. NEURONTIN [Suspect]
     Active Substance: GABAPENTIN
     Indication: HERPES ZOSTER
     Dosage: 900 MG, 3X/DAY

REACTIONS (4)
  - Peripheral swelling [Unknown]
  - Lethargy [Unknown]
  - Insomnia [Unknown]
  - Product use issue [Unknown]
